FAERS Safety Report 14592228 (Version 9)
Quarter: 2025Q2

REPORT INFORMATION
  Report Type: Spontaneous
  Country: IT (occurrence: IT)
  Receive Date: 20180302
  Receipt Date: 20250628
  Transmission Date: 20250717
  Serious: Yes (Other)
  Sender: AMGEN
  Company Number: IT-AMGEN-ITASP2018027615

PATIENT
  Age: 19 Year
  Sex: Female

DRUGS (31)
  1. BLINCYTO [Suspect]
     Active Substance: BLINATUMOMAB
     Indication: Acute lymphocytic leukaemia
     Route: 042
     Dates: start: 20161220
  2. FILGRASTIM [Suspect]
     Active Substance: FILGRASTIM
     Indication: Acute lymphocytic leukaemia
     Dosage: 5 MICROGRAM/KILOGRAM, QD, CYCLIC, 5 TO ANC }1.0
     Route: 058
  3. FILGRASTIM [Suspect]
     Active Substance: FILGRASTIM
     Dosage: 5 MCG/KG, QD(CYCLIC (CYCLE 2)
     Route: 058
  4. FILGRASTIM [Suspect]
     Active Substance: FILGRASTIM
     Dosage: 5 MCG/KG, QD  (CYCLIC (CYCLE 3) AND AT 10 MCG/KG DAILY CYCLIC (CYCLE 7)
     Route: 058
  5. FILGRASTIM [Suspect]
     Active Substance: FILGRASTIM
     Dosage: 5 MCG/KG, QD  (CYCLE 7), 8 TO HARVEST/ANC GREATER THAN 1.0
     Route: 058
  6. VINCRISTINE SULFATE [Suspect]
     Active Substance: VINCRISTINE SULFATE
     Indication: Acute lymphocytic leukaemia
     Route: 042
  7. CYTARABINE [Suspect]
     Active Substance: CYTARABINE
     Indication: Acute lymphocytic leukaemia
     Dosage: 75 MG/M2, QD (CYCLIC (CYCLE 2))
     Route: 042
  8. CYTARABINE [Suspect]
     Active Substance: CYTARABINE
     Dosage: 75 MG/M2, QD ((CYCLE 2), DAY 2-5, 9-12)
     Route: 058
  9. CYTARABINE [Suspect]
     Active Substance: CYTARABINE
     Dosage: 2000 MG/M2, BID (CYCLIC (Q12H) CYCLE 7)
     Route: 042
  10. METHOTREXATE [Suspect]
     Active Substance: METHOTREXATE
     Indication: Acute lymphocytic leukaemia
     Route: 042
  11. IDARUBICIN HYDROCHLORIDE [Suspect]
     Active Substance: IDARUBICIN HYDROCHLORIDE
     Indication: Acute lymphocytic leukaemia
     Dosage: 12 MG/M2, QD (CYCLIC; DAY1,2 (CYCLE1 AND 2)
     Route: 042
  12. DEXAMETHASONE SODIUM PHOSPHATE [Suspect]
     Active Substance: DEXAMETHASONE SODIUM PHOSPHATE
     Indication: Acute lymphocytic leukaemia
     Dosage: 5 MG/M2, BID (CYCLIC DAY 1-5, 15-19)
     Route: 042
  13. DEXAMETHASONE SODIUM PHOSPHATE [Suspect]
     Active Substance: DEXAMETHASONE SODIUM PHOSPHATE
     Dosage: 5 MG/M2, BID (CYCLIC DAY 1-5 (CYCLE 2)
     Route: 042
  14. DEXAMETHASONE SODIUM PHOSPHATE [Suspect]
     Active Substance: DEXAMETHASONE SODIUM PHOSPHATE
     Dosage: 5 MG/M2, BID (CYCLIC DAY 1-5 (CYCLE 2)
     Route: 048
  15. CYCLOPHOSPHAMIDE [Suspect]
     Active Substance: CYCLOPHOSPHAMIDE
     Indication: Acute lymphocytic leukaemia
     Dosage: 300 MG/M2, QD (CYCLIC DAY -3 TO-1)
     Route: 042
  16. CYCLOPHOSPHAMIDE [Suspect]
     Active Substance: CYCLOPHOSPHAMIDE
     Dosage: 1000 MG/M2, QD (CYCLIC (CYCLE 2)
     Route: 042
  17. PREDNISONE [Suspect]
     Active Substance: PREDNISONE
     Indication: Acute lymphocytic leukaemia
     Dosage: 20 MG/M2, BID ((QL 2 H CYCLIC)
     Route: 048
  18. LENOGRASTIM [Suspect]
     Active Substance: LENOGRASTIM
     Indication: Acute lymphocytic leukaemia
     Dosage: 5 MICROGRAM/KILOGRAM, QD, (CYCLE 3)
     Route: 058
  19. LENOGRASTIM [Suspect]
     Active Substance: LENOGRASTIM
     Dosage: 5 MICROGRAM/KILOGRAM, QD, (CYCLE 3)
     Route: 058
  20. LENOGRASTIM [Suspect]
     Active Substance: LENOGRASTIM
     Dosage: 5 MICROGRAM/KILOGRAM, QD
     Route: 058
  21. LENOGRASTIM [Suspect]
     Active Substance: LENOGRASTIM
     Dosage: 10 MICROGRAM/KILOGRAM, QD
     Route: 058
  22. LENOGRASTIM [Suspect]
     Active Substance: LENOGRASTIM
     Dosage: 10 MICROGRAM/SQ. METER, QD
     Route: 058
  23. MERCAPTOPURINE [Suspect]
     Active Substance: MERCAPTOPURINE
     Indication: Acute lymphocytic leukaemia
     Dosage: 60 MG/M2, QD (CYCLIC DAY 1-14)
     Route: 048
  24. LEUCOVORIN [Suspect]
     Active Substance: LEUCOVORIN\LEUCOVORIN CALCIUM
     Indication: Acute lymphocytic leukaemia
     Route: 042
  25. THIOTEPA [Suspect]
     Active Substance: THIOTEPA
     Indication: Acute lymphocytic leukaemia
     Route: 065
     Dates: start: 20150904
  26. BUSULFAN [Suspect]
     Active Substance: BUSULFAN
     Indication: Acute lymphocytic leukaemia
     Route: 042
     Dates: start: 20150904
  27. FLUDARABINE [Suspect]
     Active Substance: FLUDARABINE PHOSPHATE
     Indication: Acute lymphocytic leukaemia
     Route: 065
     Dates: start: 20150904
  28. DEXAMETHASONE [Suspect]
     Active Substance: DEXAMETHASONE
     Indication: Acute lymphocytic leukaemia
     Route: 042
  29. DEXAMETHASONE [Suspect]
     Active Substance: DEXAMETHASONE
     Route: 042
  30. DEXAMETHASONE [Suspect]
     Active Substance: DEXAMETHASONE
     Route: 042
  31. INOTUZUMAB OZOGAMICIN [Concomitant]
     Active Substance: INOTUZUMAB OZOGAMICIN

REACTIONS (4)
  - Acute lymphocytic leukaemia recurrent [Unknown]
  - Seizure [Recovered/Resolved]
  - Neurotoxicity [Recovered/Resolved]
  - Neoplasm recurrence [Unknown]
